FAERS Safety Report 5037407-8 (Version None)
Quarter: 2006Q2

REPORT INFORMATION
  Report Type: 
  Country: None (occurrence: None)
  Receive Date: 20060628
  Receipt Date: 20060616
  Transmission Date: 20061013
  Serious: Yes (Life-Threatening, Hospitalization)
  Sender: FDA-Public Use
  Company Number: GB-BRISTOL-MYERS SQUIBB COMPANY-13420427

PATIENT
  Age: 57 Year
  Sex: Female

DRUGS (7)
  1. METFORMIN HYDROCHLORIDE [Suspect]
     Indication: DIABETES MELLITUS NON-INSULIN-DEPENDENT
     Route: 048
     Dates: end: 20060513
  2. RAMIPRIL [Suspect]
     Route: 048
     Dates: end: 20060513
  3. LOSARTAN [Suspect]
     Dates: end: 20060513
  4. FUROSEMIDE [Suspect]
     Route: 048
     Dates: end: 20060513
  5. ASPIRIN [Concomitant]
     Route: 048
     Dates: end: 20060513
  6. ATENOLOL [Concomitant]
     Indication: HYPERTENSION
     Route: 048
     Dates: end: 20060513
  7. MOXONIDINE [Concomitant]
     Indication: HYPERTENSION
     Route: 048
     Dates: end: 20060513

REACTIONS (4)
  - DEHYDRATION [None]
  - LACTIC ACIDOSIS [None]
  - RENAL FAILURE [None]
  - VOMITING [None]
